FAERS Safety Report 11381344 (Version 1)
Quarter: 2015Q3

REPORT INFORMATION
  Report Type: Spontaneous
  Country: US (occurrence: US)
  Receive Date: 20150814
  Receipt Date: 20150814
  Transmission Date: 20151125
  Serious: No
  Sender: FDA-Public Use
  Company Number: US-ENDO PHARMACEUTICALS INC.-2015-002039

PATIENT
  Age: 24 Year
  Sex: Male
  Weight: 90.8 kg

DRUGS (3)
  1. XIAFLEX [Suspect]
     Active Substance: COLLAGENASE CLOSTRIDIUM HISTOLYTICUM
     Indication: PEYRONIE^S DISEASE
     Route: 026
     Dates: start: 201502
  2. XIAFLEX [Suspect]
     Active Substance: COLLAGENASE CLOSTRIDIUM HISTOLYTICUM
     Route: 026
     Dates: start: 20150719
  3. TRENTAL [Concomitant]
     Active Substance: PENTOXIFYLLINE
     Indication: POOR PERIPHERAL CIRCULATION

REACTIONS (4)
  - Penis disorder [Unknown]
  - Penile pain [Not Recovered/Not Resolved]
  - Penile swelling [Not Recovered/Not Resolved]
  - Injection site pain [Not Recovered/Not Resolved]

NARRATIVE: CASE EVENT DATE: 201502
